FAERS Safety Report 7582028-6 (Version None)
Quarter: 2011Q2

REPORT INFORMATION
  Report Type: 
  Country: None (occurrence: None)
  Receive Date: 20110630
  Receipt Date: 20110622
  Transmission Date: 20111010
  Serious: No
  Sender: FDA-Public Use
  Company Number: US-BIOGENIDEC-2011BI010122

PATIENT
  Sex: Female

DRUGS (4)
  1. TYSABRI [Suspect]
     Indication: MULTIPLE SCLEROSIS
     Route: 042
     Dates: start: 20110311
  2. TOPAMAX [Concomitant]
     Indication: HEADACHE
  3. CELEXA [Concomitant]
     Indication: DEPRESSION
  4. NUCYNTA [Concomitant]
     Indication: HEADACHE

REACTIONS (9)
  - HYPOAESTHESIA [None]
  - HEADACHE [None]
  - VOMITING [None]
  - ABDOMINAL PAIN UPPER [None]
  - PRURITUS GENERALISED [None]
  - URINARY TRACT INFECTION [None]
  - DYSURIA [None]
  - OEDEMA PERIPHERAL [None]
  - ASTHENIA [None]
